FAERS Safety Report 21882629 (Version 1)
Quarter: 2023Q1

REPORT INFORMATION
  Report Type: Report from Study
  Country: US (occurrence: US)
  Receive Date: 20230119
  Receipt Date: 20230119
  Transmission Date: 20230418
  Serious: No
  Sender: FDA-Public Use
  Company Number: US-Accord-275453

PATIENT
  Sex: Female
  Weight: 111.58 kg

DRUGS (1)
  1. CLOZAPINE [Suspect]
     Active Substance: CLOZAPINE
     Indication: Major depression
     Dosage: 300MG/A DAY
     Dates: start: 201904

REACTIONS (2)
  - Off label use [Unknown]
  - Treatment noncompliance [Unknown]
